FAERS Safety Report 4314763-7 (Version None)
Quarter: 2004Q1

REPORT INFORMATION
  Report Type: 
  Country: None (occurrence: None)
  Receive Date: 20040308
  Receipt Date: 20040226
  Transmission Date: 20041129
  Serious: Yes (Other)
  Sender: FDA-Public Use
  Company Number: 2004EU000429

PATIENT
  Age: 5 Year
  Sex: Female

DRUGS (1)
  1. PROTOPIC [Suspect]
     Indication: DERMATITIS ATOPIC
     Dosage: TOPICAL
     Route: 061
     Dates: start: 20030101

REACTIONS (4)
  - ABDOMINAL PAIN [None]
  - ALPHA 1 FOETOPROTEIN INCREASED [None]
  - HEPATIC NEOPLASM [None]
  - LIVER DISORDER [None]
